FAERS Safety Report 17021701 (Version 2)
Quarter: 2020Q1

REPORT INFORMATION
  Report Type: Report from Study
  Country: GB (occurrence: GB)
  Receive Date: 20191112
  Receipt Date: 20200217
  Transmission Date: 20200409
  Serious: Yes (Other)
  Sender: FDA-Public Use
  Company Number: PHHY2019GB034797

PATIENT
  Age: 58 Year
  Sex: Female

DRUGS (2)
  1. AMLODIPINE [Concomitant]
     Active Substance: AMLODIPINE BESYLATE
     Indication: RAYNAUD^S PHENOMENON
     Route: 065
  2. GILENYA [Suspect]
     Active Substance: FINGOLIMOD HYDROCHLORIDE
     Indication: MULTIPLE SCLEROSIS
     Dosage: 0.5 MG, QD
     Route: 048
     Dates: start: 20190211

REACTIONS (14)
  - Pain [Unknown]
  - Ligament injury [Unknown]
  - Contusion [Unknown]
  - Fatigue [Recovering/Resolving]
  - Lymphocyte count decreased [Unknown]
  - Sinus bradycardia [Recovering/Resolving]
  - Prescribed underdose [Unknown]
  - Haemoglobin decreased [Recovering/Resolving]
  - Muscle injury [Unknown]
  - Fall [Unknown]
  - Bradycardia [Unknown]
  - Retinal thickening [Unknown]
  - Balance disorder [Unknown]
  - Urinary tract infection [Unknown]

NARRATIVE: CASE EVENT DATE: 20190211
